FAERS Safety Report 9775863 (Version 2)
Quarter: 2014Q4

REPORT INFORMATION
  Report Type: Spontaneous
  Country: JP (occurrence: JP)
  Receive Date: 20131220
  Receipt Date: 20141217
  Transmission Date: 20150529
  Serious: Yes (Hospitalization, Other)
  Sender: FDA-Public Use
  Company Number: JP-GLAXOSMITHKLINE-B0843625A

PATIENT
  Age: 78 Year
  Sex: Male

DRUGS (4)
  1. ADEFOVIR DIPIVOXIL. [Suspect]
     Active Substance: ADEFOVIR DIPIVOXIL
     Route: 048
  2. ADEFOVIR DIPIVOXIL. [Suspect]
     Active Substance: ADEFOVIR DIPIVOXIL
     Route: 048
     Dates: end: 201111
  3. LAMIVUDINE. [Suspect]
     Active Substance: LAMIVUDINE
     Route: 048
  4. ADEFOVIR DIPIVOXIL. [Suspect]
     Active Substance: ADEFOVIR DIPIVOXIL
     Indication: HEPATITIS B
     Dosage: UNK
     Route: 048
     Dates: start: 200609

REACTIONS (19)
  - Femoral neck fracture [Unknown]
  - Rib fracture [Unknown]
  - Oedema peripheral [Unknown]
  - Blood alkaline phosphatase increased [Recovering/Resolving]
  - Pulmonary tuberculosis [Unknown]
  - Pain [Unknown]
  - Gait disturbance [Unknown]
  - Fanconi syndrome [Unknown]
  - Musculoskeletal disorder [Unknown]
  - Metastasis [Unknown]
  - Bone density decreased [Unknown]
  - Drug resistance [Unknown]
  - Pleural effusion [Unknown]
  - Osteomalacia [Recovered/Resolved]
  - Blood phosphorus decreased [Recovered/Resolved]
  - Fall [Unknown]
  - Back pain [Unknown]
  - Pain in extremity [Unknown]
  - Pulmonary mass [Unknown]
